FAERS Safety Report 8243506-X (Version None)
Quarter: 2012Q1

REPORT INFORMATION
  Report Type: 
  Country: None (occurrence: None)
  Receive Date: 20120329
  Receipt Date: 20120327
  Transmission Date: 20120608
  Serious: Yes (Death)
  Sender: FDA-Public Use
  Company Number: PHHY2011DE38317

PATIENT
  Sex: Male
  Weight: 61 kg

DRUGS (4)
  1. STEROFUNDIN [Suspect]
     Indication: DEHYDRATION
     Dosage: 1.5 L, PER DAY
     Route: 042
  2. TPN [Concomitant]
     Indication: CACHEXIA
     Dosage: 1477 MG, DAILY CORRESPONDING TO 1600 KCAL PER DAY
     Route: 042
     Dates: start: 20101220, end: 20110218
  3. AFINITOR [Suspect]
     Indication: RENAL CELL CARCINOMA
     Dosage: 10 MG, DAILY
     Route: 048
     Dates: start: 20110105, end: 20110218
  4. DEXAMETASON [Concomitant]
     Indication: METASTASES TO CENTRAL NERVOUS SYSTEM
     Route: 048
     Dates: start: 20100920, end: 20110218

REACTIONS (15)
  - HYPOKINESIA [None]
  - SEPSIS [None]
  - BREATH SOUNDS ABNORMAL [None]
  - ALTERED STATE OF CONSCIOUSNESS [None]
  - OEDEMA PERIPHERAL [None]
  - CACHEXIA [None]
  - GENERAL PHYSICAL HEALTH DETERIORATION [None]
  - PNEUMONIA [None]
  - MULTI-ORGAN FAILURE [None]
  - NEOPLASM PROGRESSION [None]
  - BREATH ODOUR [None]
  - NEOPLASM MALIGNANT [None]
  - DISORIENTATION [None]
  - OXYGEN SATURATION DECREASED [None]
  - DEHYDRATION [None]
